APPROVED DRUG PRODUCT: FENOFIBRATE (MICRONIZED)
Active Ingredient: FENOFIBRATE
Strength: 43MG
Dosage Form/Route: CAPSULE;ORAL
Application: A090859 | Product #001 | TE Code: AB
Applicant: CHARTWELL RX SCIENCES LLC
Approved: Mar 1, 2012 | RLD: No | RS: No | Type: RX